FAERS Safety Report 7676834-7 (Version None)
Quarter: 2011Q3

REPORT INFORMATION
  Report Type: 
  Country: None (occurrence: None)
  Receive Date: 20110811
  Receipt Date: 20110801
  Transmission Date: 20111222
  Serious: Yes (Disabling)
  Sender: FDA-Public Use
  Company Number: US-CELGENEUS-163-20785-11070187

PATIENT
  Sex: Male

DRUGS (3)
  1. THALOMID [Suspect]
     Dosage: 100 MILLIGRAM
     Route: 048
     Dates: start: 20110201, end: 20110101
  2. THALOMID [Suspect]
     Indication: MULTIPLE MYELOMA
     Dosage: 100 MILLIGRAM
     Route: 048
     Dates: start: 20100801, end: 20100101
  3. THALOMID [Suspect]
     Dosage: 100-200 MG
     Route: 048
     Dates: start: 20101001, end: 20110101

REACTIONS (2)
  - NEUROPATHY PERIPHERAL [None]
  - IMMOBILE [None]
